FAERS Safety Report 13081706 (Version 1)
Quarter: 2017Q1

REPORT INFORMATION
  Report Type: Spontaneous
  Country: US (occurrence: US)
  Receive Date: 20170103
  Receipt Date: 20170103
  Transmission Date: 20170428
  Serious: No
  Sender: FDA-Public Use
  Company Number: US-PFIZER INC-2016592650

PATIENT
  Age: 68 Year
  Sex: Female

DRUGS (5)
  1. ELIXIR DM (BROMPHENIRAMINE MALEATE\DEXTROMETHORPHAN HBR\PHENYLEPHRINE HCL) [Suspect]
     Active Substance: BROMPHENIRAMINE MALEATE\DEXTROMETHORPHAN HYDROBROMIDE\PHENYLEPHRINE HYDROCHLORIDE
     Indication: HYPERSENSITIVITY
  2. CODEINE SULFATE. [Suspect]
     Active Substance: CODEINE SULFATE
     Indication: ANALGESIC THERAPY
     Dosage: UNK
  3. PROMETHAZINE HCL [Suspect]
     Active Substance: PROMETHAZINE HYDROCHLORIDE
     Dosage: UNK
  4. ELIXIR DM (BROMPHENIRAMINE MALEATE\DEXTROMETHORPHAN HBR\PHENYLEPHRINE HCL) [Suspect]
     Active Substance: BROMPHENIRAMINE MALEATE\DEXTROMETHORPHAN HYDROBROMIDE\PHENYLEPHRINE HYDROCHLORIDE
     Indication: COUGH
     Dosage: UNK
  5. ELIXIR DM (BROMPHENIRAMINE MALEATE\DEXTROMETHORPHAN HBR\PHENYLEPHRINE HCL) [Suspect]
     Active Substance: BROMPHENIRAMINE MALEATE\DEXTROMETHORPHAN HYDROBROMIDE\PHENYLEPHRINE HYDROCHLORIDE
     Indication: NASOPHARYNGITIS

REACTIONS (2)
  - Drug hypersensitivity [None]
  - Drug hypersensitivity [Unknown]
